FAERS Safety Report 9632150 (Version 1)
Quarter: 2013Q4

REPORT INFORMATION
  Report Type: Report from Study
  Country: DE (occurrence: DE)
  Receive Date: 20131018
  Receipt Date: 20131018
  Transmission Date: 20140711
  Serious: Yes (Other)
  Sender: FDA-Public Use
  Company Number: DE-TEVA-438449USA

PATIENT
  Age: 62 Year
  Sex: Male

DRUGS (3)
  1. BENDAMUSTINE [Suspect]
     Indication: B-CELL LYMPHOMA
     Dates: start: 20130708
  2. BENDAMUSTINE [Suspect]
     Dates: start: 20130805
  3. RITUXIMAB [Concomitant]
     Dates: start: 20130805

REACTIONS (5)
  - Haemolytic anaemia [Unknown]
  - Bone pain [Unknown]
  - Fatigue [Unknown]
  - Neutropenia [Unknown]
  - Decreased appetite [Unknown]
